FAERS Safety Report 19397694 (Version 2)
Quarter: 2021Q4

REPORT INFORMATION
  Report Type: Spontaneous
  Country: JP (occurrence: JP)
  Receive Date: 20210609
  Receipt Date: 20211223
  Transmission Date: 20220303
  Serious: Yes (Hospitalization, Other)
  Sender: FDA-Public Use
  Company Number: JP-SAKK-2021SA188788AA

PATIENT
  Age: 69 Year
  Sex: Female
  Weight: 47.5 kg

DRUGS (1)
  1. DOCETAXEL [Suspect]
     Active Substance: DOCETAXEL
     Indication: Oesophageal squamous cell carcinoma recurrent
     Dosage: UNK
     Route: 065

REACTIONS (8)
  - Nutritional condition abnormal [Recovering/Resolving]
  - Oedema peripheral [Recovering/Resolving]
  - Febrile neutropenia [Unknown]
  - Oedema due to hepatic disease [Unknown]
  - Ascites [Recovering/Resolving]
  - Pleural effusion [Recovering/Resolving]
  - Generalised oedema [Unknown]
  - Weight increased [Unknown]
